FAERS Safety Report 4341430-6 (Version None)
Quarter: 2004Q2

REPORT INFORMATION
  Report Type: 
  Country: None (occurrence: None)
  Receive Date: 20040415
  Receipt Date: 20040402
  Transmission Date: 20050107
  Serious: Yes (Life-Threatening, Other)
  Sender: FDA-Public Use
  Company Number: 2004015695

PATIENT
  Sex: Female
  Weight: 90 kg

DRUGS (6)
  1. ZOLOFT [Suspect]
     Indication: DEPRESSION
     Dosage: 50 MG (DAILY), ORAL
     Route: 048
     Dates: start: 20040218, end: 20040227
  2. ALDACTAZIDE [Suspect]
     Indication: HYPERTENSION
     Dosage: (DAILY), ORAL
     Route: 048
     Dates: start: 20040213, end: 20040227
  3. PANTOPRAZOLE           (PANTOPRAZOLE) [Concomitant]
  4. PERINDOPRIL         (PERINDOPRIL) [Concomitant]
  5. APOREX           (DEXTROPROPOXYPHENE HYDROCHLORIDE, PARACETAMOL) [Concomitant]
  6. HEPARIN-FRACTION, SODIUM SALT          (HEPARIN-FRACTION, SODIUM SALT) [Concomitant]

REACTIONS (6)
  - ABDOMINAL PAIN UPPER [None]
  - ABNORMAL BEHAVIOUR [None]
  - BRADYPHRENIA [None]
  - FALL [None]
  - HYPONATRAEMIA [None]
  - SOMNOLENCE [None]
